FAERS Safety Report 4828025-2 (Version None)
Quarter: 2005Q4

REPORT INFORMATION
  Report Type: 
  Country: None (occurrence: None)
  Receive Date: 20051115
  Receipt Date: 20051107
  Transmission Date: 20060501
  Serious: Yes (Hospitalization, Other)
  Sender: FDA-Public Use
  Company Number: GB-JNJFOC-20051101673

PATIENT
  Sex: Female
  Weight: 89 kg

DRUGS (11)
  1. REMICADE [Suspect]
     Indication: RHEUMATOID ARTHRITIS
     Route: 042
  2. METHOTREXATE [Concomitant]
     Route: 065
  3. PREDNISOLONE [Concomitant]
     Route: 065
  4. CALCICHEW [Concomitant]
     Route: 065
  5. CODEINE PHOSPHATE AND ACETAMINOPHEN [Concomitant]
     Route: 065
  6. CODEINE PHOSPHATE AND ACETAMINOPHEN [Concomitant]
     Route: 065
  7. DIAZEPAM [Concomitant]
     Route: 065
  8. DOTHEPIN [Concomitant]
     Route: 065
  9. FOLIC ACID [Concomitant]
     Route: 065
  10. OMEPRAZOLE [Concomitant]
     Route: 065
  11. PROPRANOLOL [Concomitant]
     Route: 065

REACTIONS (1)
  - LOSS OF CONSCIOUSNESS [None]
